FAERS Safety Report 13111469 (Version 1)
Quarter: 2017Q1

REPORT INFORMATION
  Report Type: Spontaneous
  Country: US (occurrence: US)
  Receive Date: 20170112
  Receipt Date: 20170112
  Transmission Date: 20170428
  Serious: No
  Sender: FDA-Public Use
  Company Number: US-ASTRAZENECA-2017SE01285

PATIENT
  Age: 683 Month
  Sex: Female

DRUGS (4)
  1. NEXIUM [Suspect]
     Active Substance: ESOMEPRAZOLE MAGNESIUM
     Indication: GASTROOESOPHAGEAL REFLUX DISEASE
     Route: 048
  2. NEXIUM [Suspect]
     Active Substance: ESOMEPRAZOLE MAGNESIUM
     Indication: GASTROOESOPHAGEAL REFLUX DISEASE
     Route: 048
     Dates: start: 2016
  3. NEXIUM [Suspect]
     Active Substance: ESOMEPRAZOLE MAGNESIUM
     Indication: GASTROOESOPHAGEAL REFLUX DISEASE
     Route: 048
  4. VITAMINS [Concomitant]
     Active Substance: VITAMINS

REACTIONS (13)
  - Feeling abnormal [Unknown]
  - Sjogren^s syndrome [Unknown]
  - Saliva altered [Unknown]
  - Systemic lupus erythematosus [Unknown]
  - Dry skin [Unknown]
  - Thirst [Unknown]
  - Product packaging quantity issue [Unknown]
  - Fluid intake reduced [Unknown]
  - Tooth disorder [Unknown]
  - Fibromyalgia [Unknown]
  - Lacrimation decreased [Unknown]
  - Malaise [Unknown]
  - Drug dose omission [Recovered/Resolved]

NARRATIVE: CASE EVENT DATE: 201612
